FAERS Safety Report 23598297 (Version 1)
Quarter: 2024Q1

REPORT INFORMATION
  Report Type: Report from Study
  Country: IT (occurrence: IT)
  Receive Date: 20240305
  Receipt Date: 20240305
  Transmission Date: 20240410
  Serious: Yes (Other)
  Sender: FDA-Public Use
  Company Number: None

PATIENT
  Age: 72 Year
  Sex: Male
  Weight: 83 kg

DRUGS (2)
  1. FLUOROURACIL [Suspect]
     Active Substance: FLUOROURACIL
     Indication: Biliary neoplasm
     Dosage: 4700 MG EVERY 14 DAYS
     Route: 042
     Dates: start: 20240103, end: 20240103
  2. IRINOTECAN [Suspect]
     Active Substance: IRINOTECAN
     Indication: Biliary neoplasm
     Dosage: 250 MG EVERY 14 DAYS
     Route: 042
     Dates: start: 20240103, end: 20240103

REACTIONS (2)
  - Thrombocytopenia [Not Recovered/Not Resolved]
  - Off label use [Not Recovered/Not Resolved]

NARRATIVE: CASE EVENT DATE: 20231227
